FAERS Safety Report 5580663-8 (Version None)
Quarter: 2007Q4

REPORT INFORMATION
  Report Type: 
  Country: None (occurrence: None)
  Receive Date: 20071130
  Receipt Date: 20070630
  Transmission Date: 20080405
  Serious: No
  Sender: FDA-Public Use
  Company Number: US200707002468

PATIENT
  Age: 56 Year
  Sex: Female

DRUGS (1)
  1. BYETTA [Suspect]
     Indication: TYPE 2 DIABETES MELLITUS
     Dosage: 10 MG
     Dates: start: 20070101, end: 20070401

REACTIONS (2)
  - DRUG INEFFECTIVE [None]
  - NAUSEA [None]
